FAERS Safety Report 15952170 (Version 2)
Quarter: 2019Q2

REPORT INFORMATION
  Report Type: Spontaneous
  Country: RU (occurrence: RU)
  Receive Date: 20190211
  Receipt Date: 20190402
  Transmission Date: 20190711
  Serious: Yes (Hospitalization, Congenital Anomaly, Other)
  Sender: FDA-Public Use
  Company Number: RU-NOVOPROD-645012

PATIENT
  Sex: Female
  Weight: 2.95 kg

DRUGS (1)
  1. LEVEMIR [Suspect]
     Active Substance: INSULIN DETEMIR
     Indication: GESTATIONAL DIABETES
     Dosage: 6 - 8 UNITS PER DAY
     Route: 064
     Dates: start: 20181003, end: 20181207

REACTIONS (5)
  - Diabetic foetopathy [Recovered/Resolved]
  - Premature baby [Unknown]
  - Foetal exposure during pregnancy [Recovered/Resolved]
  - Atrial septal defect [Not Recovered/Not Resolved]
  - Congenital cerebral cyst [Not Recovered/Not Resolved]

NARRATIVE: CASE EVENT DATE: 20181003
